FAERS Safety Report 6940651-3 (Version None)
Quarter: 2010Q3

REPORT INFORMATION
  Report Type: 
  Country: None (occurrence: None)
  Receive Date: 20100825
  Receipt Date: 20100818
  Transmission Date: 20110219
  Serious: Yes (Other)
  Sender: FDA-Public Use
  Company Number: US-ALLERGAN-1007880US

PATIENT
  Age: 79 Year
  Sex: Female

DRUGS (2)
  1. COMBIGAN [Suspect]
     Indication: RETINAL VEIN OCCLUSION
     Dosage: 1 GTT BID, REDUCED TO 1 GTT QD
     Route: 047
     Dates: start: 20100201
  2. NITROGLYCERIN [Concomitant]

REACTIONS (1)
  - ANGINA PECTORIS [None]
